FAERS Safety Report 5987614-2 (Version None)
Quarter: 2008Q4

REPORT INFORMATION
  Report Type: 
  Country: None (occurrence: None)
  Receive Date: 20081128
  Receipt Date: 20080102
  Transmission Date: 20090506
  Serious: Yes (Other)
  Sender: FDA-Public Use
  Company Number: US022028

PATIENT
  Age: 21 Year
  Sex: Male
  Weight: 105 kg

DRUGS (6)
  1. TRISENOX [Suspect]
     Indication: ACUTE PROMYELOCYTIC LEUKAEMIA
     Dosage: 15 MG QD INTRAVENOUS
     Route: 042
     Dates: start: 20071203, end: 20071217
  2. TRISENOX [Suspect]
     Indication: ACUTE PROMYELOCYTIC LEUKAEMIA
     Dosage: 7.5 MG QD INTRAVENOUS
     Route: 042
     Dates: start: 20071219
  3. TRISENOX [Suspect]
     Indication: ACUTE PROMYELOCYTIC LEUKAEMIA
     Dosage: 1     QD INTRAVENOUS
     Route: 042
     Dates: start: 20071201
  4. ZOFRAN [Concomitant]
  5. ELECTROLYTE [Concomitant]
  6. MAALOX [Concomitant]

REACTIONS (3)
  - DYSGEUSIA [None]
  - ELECTROCARDIOGRAM QT PROLONGED [None]
  - TONGUE DISCOLOURATION [None]
